FAERS Safety Report 9335438 (Version 3)
Quarter: 2013Q3

REPORT INFORMATION
  Report Type: Spontaneous
  Country: BR (occurrence: BR)
  Receive Date: 20130605
  Receipt Date: 20130822
  Transmission Date: 20140515
  Serious: Yes (Other)
  Sender: FDA-Public Use
  Company Number: PHHY2013BR056978

PATIENT
  Age: 10 Year
  Sex: Male
  Weight: 47 kg

DRUGS (2)
  1. RITALINA [Suspect]
     Indication: ATTENTION DEFICIT/HYPERACTIVITY DISORDER
     Dosage: 0.5 DF, BID
     Route: 048
  2. RITALINA [Suspect]
     Dosage: 2 DF, QD

REACTIONS (12)
  - Depression [Recovered/Resolved]
  - Panic disorder [Recovered/Resolved]
  - Derealisation [Recovered/Resolved]
  - Crying [Recovered/Resolved]
  - Fear [Recovered/Resolved]
  - Screaming [Recovered/Resolved]
  - Nervousness [Recovered/Resolved]
  - Agitation [Recovered/Resolved]
  - Decreased appetite [Recovered/Resolved]
  - Weight decreased [Recovered/Resolved]
  - Disturbance in attention [Recovered/Resolved]
  - Drug ineffective [Recovered/Resolved]
